FAERS Safety Report 21315457 (Version 1)
Quarter: 2022Q3

REPORT INFORMATION
  Report Type: Spontaneous
  Country: US (occurrence: US)
  Receive Date: 20220909
  Receipt Date: 20220909
  Transmission Date: 20221027
  Serious: Yes (Other)
  Sender: FDA-Public Use
  Company Number: US-MLMSERVICE-20220826-3760130-1

PATIENT
  Age: 8 Decade
  Sex: Male

DRUGS (7)
  1. DEXAMETHASONE [Suspect]
     Active Substance: DEXAMETHASONE
     Indication: COVID-19
     Route: 048
  2. DEXAMETHASONE [Suspect]
     Active Substance: DEXAMETHASONE
     Indication: Product use in unapproved indication
  3. POMALIDOMIDE [Suspect]
     Active Substance: POMALIDOMIDE
     Indication: Plasma cell myeloma
     Dosage: PALLIATIVE POMALIDOMIDE; FIFTH-LINE THERAPY, STABLE ON FOR MORE THAN 2YEARS
     Route: 065
  4. CEFTRIAXONE [Concomitant]
     Active Substance: CEFTRIAXONE
     Indication: Pneumonia bacterial
     Dosage: STARTED ON HOSPITAL DAY 1
  5. AZITHROMYCIN [Concomitant]
     Active Substance: AZITHROMYCIN
     Indication: Pneumonia bacterial
     Dosage: STARTED ON HOSPITAL DAY 1
  6. CEFEPIME [Concomitant]
     Active Substance: CEFEPIME HYDROCHLORIDE
     Indication: Lymphopenia
  7. MICAFUNGIN [Concomitant]
     Active Substance: MICAFUNGIN
     Indication: Lymphopenia

REACTIONS (2)
  - Disseminated cryptococcosis [Unknown]
  - Product use in unapproved indication [Unknown]
